FAERS Safety Report 13542383 (Version 2)
Quarter: 2021Q2

REPORT INFORMATION
  Report Type: Other
  Country: US (occurrence: US)
  Receive Date: 20170512
  Receipt Date: 20210505
  Transmission Date: 20210716
  Serious: No
  Sender: FDA-Public Use
  Company Number: US-ROCHE-694331

PATIENT
  Age: 25 Year
  Sex: Female

DRUGS (1)
  1. AVASTIN [Suspect]
     Active Substance: BEVACIZUMAB
     Indication: CHOROIDAL NEOVASCULARISATION
     Route: 050

REACTIONS (4)
  - Intentional product use issue [Unknown]
  - Normal newborn [Unknown]
  - Off label use [Unknown]
  - No adverse event [Unknown]
